FAERS Safety Report 7620388-8 (Version None)
Quarter: 2011Q3

REPORT INFORMATION
  Report Type: 
  Country: None (occurrence: None)
  Receive Date: 20110718
  Receipt Date: 20110718
  Transmission Date: 20111222
  Serious: Yes (Hospitalization)
  Sender: FDA-Public Use
  Company Number: None

PATIENT
  Age: 48 Year
  Sex: Male
  Weight: 105 kg

DRUGS (1)
  1. HYDROXYCUT [Suspect]
     Indication: WEIGHT CONTROL
     Dosage: 1 TAB
     Route: 048

REACTIONS (4)
  - CONVULSION [None]
  - INCONTINENCE [None]
  - AGITATION [None]
  - TONGUE BITING [None]
